FAERS Safety Report 11605018 (Version 1)
Quarter: 2015Q4

REPORT INFORMATION
  Report Type: Spontaneous
  Country: US (occurrence: US)
  Receive Date: 20151007
  Receipt Date: 20151007
  Transmission Date: 20160304
  Serious: Yes (Hospitalization, Other)
  Sender: FDA-Public Use
  Company Number: US-PFIZER INC-2015330917

PATIENT
  Age: 70 Year
  Sex: Male
  Weight: 66 kg

DRUGS (2)
  1. REVATIO [Suspect]
     Active Substance: SILDENAFIL CITRATE
     Indication: LUNG DISORDER
     Dosage: 40 MG, 3X/DAY
     Route: 048
  2. REVATIO [Suspect]
     Active Substance: SILDENAFIL CITRATE
     Indication: CARDIAC DISORDER
     Dosage: UNK
     Route: 048

REACTIONS (6)
  - Acute kidney injury [Unknown]
  - Fluid retention [Unknown]
  - Condition aggravated [Unknown]
  - Hypoacusis [Unknown]
  - Cardiac disorder [Unknown]
  - Cardiac failure congestive [Unknown]
